FAERS Safety Report 22349585 (Version 1)
Quarter: 2023Q2

REPORT INFORMATION
  Report Type: Spontaneous
  Country: DE (occurrence: DE)
  Receive Date: 20230522
  Receipt Date: 20230522
  Transmission Date: 20230722
  Serious: Yes (Other)
  Sender: FDA-Public Use
  Company Number: DE-MYLANLABS-2023M1052300

PATIENT
  Age: 8 Year
  Sex: Female

DRUGS (9)
  1. CYCLOSPORINE [Suspect]
     Active Substance: CYCLOSPORINE
     Indication: Prophylaxis against graft versus host disease
     Dosage: UNK
     Route: 065
  2. ADALIMUMAB [Suspect]
     Active Substance: ADALIMUMAB
     Indication: Chronic graft versus host disease
     Dosage: UNK
     Route: 065
  3. METHYLPREDNISOLONE [Suspect]
     Active Substance: METHYLPREDNISOLONE
     Indication: Acute graft versus host disease
     Dosage: UNK
     Route: 065
  4. INFLIXIMAB [Suspect]
     Active Substance: INFLIXIMAB
     Indication: Chronic graft versus host disease
     Dosage: UNK
     Route: 065
  5. OFATUMUMAB [Suspect]
     Active Substance: OFATUMUMAB
     Indication: Chronic graft versus host disease
     Dosage: UNK
     Route: 065
  6. RUXOLITINIB [Suspect]
     Active Substance: RUXOLITINIB
     Indication: Chronic graft versus host disease
     Dosage: UNK
     Route: 065
  7. PENTOSTATIN [Suspect]
     Active Substance: PENTOSTATIN
     Indication: Chronic graft versus host disease
     Dosage: UNK
     Route: 065
  8. SIROLIMUS [Suspect]
     Active Substance: SIROLIMUS
     Indication: Chronic graft versus host disease
     Dosage: UNK
     Route: 065
  9. ETOPOSIDE [Concomitant]
     Active Substance: ETOPOSIDE
     Indication: Bone marrow conditioning regimen
     Dosage: UNK
     Route: 065

REACTIONS (2)
  - Drug ineffective for unapproved indication [Unknown]
  - Off label use [Unknown]
